FAERS Safety Report 25699564 (Version 1)
Quarter: 2025Q3

REPORT INFORMATION
  Report Type: Spontaneous
  Country: US (occurrence: US)
  Receive Date: 20250819
  Receipt Date: 20250819
  Transmission Date: 20251020
  Serious: Yes (Other)
  Sender: STRIDES
  Company Number: US-STRIDES ARCOLAB LIMITED-2024SP016751

PATIENT
  Sex: Female

DRUGS (6)
  1. TACROLIMUS [Suspect]
     Active Substance: TACROLIMUS
     Indication: Prophylaxis against graft versus host disease
     Route: 065
  2. METHOTREXATE [Suspect]
     Active Substance: METHOTREXATE
     Indication: Prophylaxis against graft versus host disease
     Route: 065
  3. IMMUNE GLOBULIN NOS [Suspect]
     Active Substance: IMMUNE GLOBULIN NOS
     Indication: Infantile genetic agranulocytosis
     Route: 065
  4. BUSULFAN [Suspect]
     Active Substance: BUSULFAN
     Indication: Bone marrow conditioning regimen
     Route: 065
  5. CYCLOPHOSPHAMIDE [Suspect]
     Active Substance: CYCLOPHOSPHAMIDE
     Indication: Bone marrow conditioning regimen
     Route: 065
  6. ALEMTUZUMAB [Suspect]
     Active Substance: ALEMTUZUMAB
     Indication: Bone marrow conditioning regimen
     Route: 065

REACTIONS (4)
  - Graft versus host disease in skin [Recovered/Resolved]
  - Adenovirus reactivation [Unknown]
  - Human herpesvirus 6 infection reactivation [Unknown]
  - BK virus infection [Unknown]
